FAERS Safety Report 5326858-X (Version None)
Quarter: 2007Q2

REPORT INFORMATION
  Report Type: 
  Country: None (occurrence: None)
  Receive Date: 20070511
  Receipt Date: 20070502
  Transmission Date: 20071010
  Serious: Yes (Death)
  Sender: FDA-Public Use
  Company Number: DAV-AE-ACY-07-001

PATIENT
  Age: 45 Year
  Sex: Female

DRUGS (1)
  1. ACYCLOVIR [Suspect]
     Indication: KAPOSI'S VARICELLIFORM ERUPTION
     Dosage: 800MG FIVE TIMES DAILY

REACTIONS (1)
  - MULTI-ORGAN FAILURE [None]
